FAERS Safety Report 4895544-2 (Version None)
Quarter: 2006Q1

REPORT INFORMATION
  Report Type: 
  Country: None (occurrence: None)
  Receive Date: 20060130
  Receipt Date: 20051122
  Transmission Date: 20060701
  Serious: Yes (Hospitalization)
  Sender: FDA-Public Use
  Company Number: FR-ROCHE-426242

PATIENT
  Age: 10 Year
  Sex: Female
  Weight: 40 kg

DRUGS (1)
  1. LARIAM [Suspect]
     Indication: PROPHYLAXIS
     Route: 065
     Dates: start: 20051029, end: 20051122

REACTIONS (5)
  - MALAISE [None]
  - NIGHTMARE [None]
  - SYNCOPE [None]
  - URINARY INCONTINENCE [None]
  - VISUAL DISTURBANCE [None]
